FAERS Safety Report 18459971 (Version 2)
Quarter: 2021Q3

REPORT INFORMATION
  Report Type: Spontaneous
  Country: US (occurrence: US)
  Receive Date: 20201104
  Receipt Date: 20210809
  Transmission Date: 20211014
  Serious: No
  Sender: FDA-Public Use
  Company Number: US-SA-2020SA074094

PATIENT
  Age: 62 Year
  Sex: Female

DRUGS (4)
  1. NAPROXEN. [Suspect]
     Active Substance: NAPROXEN
  2. CELECOXIB. [Suspect]
     Active Substance: CELECOXIB
  3. AUBAGIO [Suspect]
     Active Substance: TERIFLUNOMIDE
     Indication: MULTIPLE SCLEROSIS
     Dosage: 14 MG, QD
     Route: 048
     Dates: start: 20190521
  4. CYANOCOBALAMIN. [Suspect]
     Active Substance: CYANOCOBALAMIN

REACTIONS (5)
  - Unevaluable event [Unknown]
  - Headache [Unknown]
  - Lacrimation increased [Unknown]
  - Dry eye [Unknown]
  - Pain of skin [Unknown]

NARRATIVE: CASE EVENT DATE: 2020
